FAERS Safety Report 9835785 (Version 1)
Quarter: 2014Q1

REPORT INFORMATION
  Report Type: Spontaneous
  Country: AR (occurrence: AR)
  Receive Date: 20140122
  Receipt Date: 20140122
  Transmission Date: 20141002
  Serious: Yes (Congenital Anomaly, Other)
  Sender: FDA-Public Use
  Company Number: AR-ROXANE LABORATORIES, INC.-2014-RO-00070RO

PATIENT
  Sex: Female
  Weight: 1 kg

DRUGS (6)
  1. METHOTREXATE [Suspect]
     Indication: FOETAL EXPOSURE DURING PREGNANCY
     Route: 064
  2. FLUCONAZOLE [Suspect]
     Indication: FOETAL EXPOSURE DURING PREGNANCY
     Route: 064
  3. RANITIDINE [Suspect]
     Indication: FOETAL EXPOSURE DURING PREGNANCY
     Route: 064
  4. ROFECOXIB [Suspect]
     Indication: FOETAL EXPOSURE DURING PREGNANCY
     Route: 064
  5. MEPREDNISONE [Suspect]
     Indication: FOETAL EXPOSURE DURING PREGNANCY
     Route: 064
  6. ISONIAZID [Suspect]
     Indication: FOETAL EXPOSURE DURING PREGNANCY
     Route: 064

REACTIONS (4)
  - Multiple congenital abnormalities [Unknown]
  - Foetal growth restriction [Unknown]
  - Premature baby [Unknown]
  - Low birth weight baby [Unknown]
